FAERS Safety Report 11982473 (Version 1)
Quarter: 2016Q1

REPORT INFORMATION
  Report Type: Spontaneous
  Country: US (occurrence: US)
  Receive Date: 20160201
  Receipt Date: 20160201
  Transmission Date: 20160526
  Serious: No
  Sender: FDA-Public Use
  Company Number: US-009507513-1601USA010977

PATIENT
  Age: 55 Year
  Sex: Female

DRUGS (3)
  1. CLARINEX [Suspect]
     Active Substance: DESLORATADINE
     Indication: HEADACHE
  2. CLARINEX [Suspect]
     Active Substance: DESLORATADINE
     Indication: SNEEZING
  3. CLARINEX [Suspect]
     Active Substance: DESLORATADINE
     Indication: HYPERSENSITIVITY
     Dosage: 5 MG, QD (ONCE A DAY)
     Route: 048
     Dates: end: 201512

REACTIONS (4)
  - Headache [Unknown]
  - Rhinorrhoea [Unknown]
  - Cough [Unknown]
  - Hypersensitivity [Unknown]

NARRATIVE: CASE EVENT DATE: 20160113
